FAERS Safety Report 4833641-8 (Version None)
Quarter: 2005Q4

REPORT INFORMATION
  Report Type: 
  Country: None (occurrence: None)
  Receive Date: 20051114
  Receipt Date: 20051114
  Transmission Date: 20060501
  Serious: No
  Sender: FDA-Public Use
  Company Number: 050136

PATIENT
  Age: 4 Month
  Sex: Female

DRUGS (1)
  1. AXID [Suspect]
     Indication: GASTROOESOPHAGEAL REFLUX DISEASE
     Dosage: PO
     Route: 048

REACTIONS (1)
  - URTICARIA GENERALISED [None]
